FAERS Safety Report 11811495 (Version 1)
Quarter: 2015Q4

REPORT INFORMATION
  Report Type: Spontaneous
  Country: US (occurrence: US)
  Receive Date: 20151208
  Receipt Date: 20151208
  Transmission Date: 20160305
  Serious: No
  Sender: FDA-Public Use
  Company Number: ALCN2015US007573

PATIENT
  Age: 68 Year
  Sex: Female
  Weight: 71.66 kg

DRUGS (2)
  1. TIMOLOL. [Suspect]
     Active Substance: TIMOLOL
     Indication: GLAUCOMA
     Dosage: 1 GTT, BID
     Route: 047
     Dates: start: 201509, end: 201510
  2. LUMIGAN [Concomitant]
     Active Substance: BIMATOPROST
     Indication: GLAUCOMA
     Dosage: 1 UNK, UNK
     Route: 047

REACTIONS (7)
  - Insomnia [Not Recovered/Not Resolved]
  - Amnesia [Recovered/Resolved]
  - Peripheral coldness [Recovered/Resolved]
  - Anxiety [Not Recovered/Not Resolved]
  - Dry mouth [Recovered/Resolved]
  - Palpitations [Not Recovered/Not Resolved]
  - Nightmare [Not Recovered/Not Resolved]

NARRATIVE: CASE EVENT DATE: 201509
